FAERS Safety Report 21753114 (Version 3)
Quarter: 2023Q1

REPORT INFORMATION
  Report Type: Spontaneous
  Country: US (occurrence: US)
  Receive Date: 20221220
  Receipt Date: 20230223
  Transmission Date: 20230418
  Serious: No
  Sender: FDA-Public Use
  Company Number: US-BRISTOL-MYERS SQUIBB COMPANY-2022-155882

PATIENT
  Age: 76 Year
  Sex: Male
  Weight: 100.7 kg

DRUGS (2)
  1. REVLIMID [Suspect]
     Active Substance: LENALIDOMIDE
     Indication: Plasma cell myeloma
     Dosage: DAILY FOR 21DAYS
     Route: 048
     Dates: start: 20220101
  2. REVLIMID [Suspect]
     Active Substance: LENALIDOMIDE
     Dosage: FREQUENCY: 3W, 1W OFF
     Route: 048

REACTIONS (5)
  - Light chain analysis increased [Unknown]
  - Fatigue [Unknown]
  - Muscular weakness [Unknown]
  - Affect lability [Unknown]
  - Abdominal discomfort [Unknown]
